FAERS Safety Report 10189631 (Version 1)
Quarter: 2014Q2

REPORT INFORMATION
  Report Type: Spontaneous
  Country: DK (occurrence: DK)
  Receive Date: 20140522
  Receipt Date: 20140522
  Transmission Date: 20141212
  Serious: Yes (Hospitalization)
  Sender: FDA-Public Use
  Company Number: DK-GLAXOSMITHKLINE-B0995259A

PATIENT
  Age: 65 Year
  Sex: Male

DRUGS (6)
  1. ARIXTRA [Suspect]
     Indication: ACUTE CORONARY SYNDROME
     Dosage: 2.5MG PER DAY
     Route: 058
     Dates: start: 20140219, end: 20140220
  2. BRILIQUE [Suspect]
     Indication: ACUTE CORONARY SYNDROME
     Dosage: 180MG PER DAY
     Route: 048
     Dates: start: 20140219, end: 20140220
  3. ATORVASTATIN [Concomitant]
  4. HJERTEMAGNYL [Concomitant]
  5. METOPROLOL SUCCINATE [Concomitant]
  6. PANTOPRAZOLE [Concomitant]

REACTIONS (1)
  - Haematuria [Recovering/Resolving]
